FAERS Safety Report 5206846-4 (Version None)
Quarter: 2006Q4

REPORT INFORMATION
  Report Type: 
  Country: None (occurrence: None)
  Receive Date: 20061026
  Receipt Date: 20060823
  Transmission Date: 20070319
  Serious: No
  Sender: FDA-Public Use
  Company Number: 2006103352

PATIENT
  Sex: Female

DRUGS (1)
  1. LYRICA [Suspect]
     Indication: NEURALGIA
     Dosage: 400 MG (400 MG)

REACTIONS (3)
  - BURNING SENSATION [None]
  - FATIGUE [None]
  - INCORRECT DOSE ADMINISTERED [None]
